FAERS Safety Report 23633757 (Version 1)
Quarter: 2024Q1

REPORT INFORMATION
  Report Type: Report from Study
  Country: JP (occurrence: None)
  Receive Date: 20240314
  Receipt Date: 20240314
  Transmission Date: 20240410
  Serious: Yes (Death, Other)
  Sender: FDA-Public Use
  Company Number: 2024A061326

PATIENT
  Age: 70 Year
  Sex: Female

DRUGS (1)
  1. OSIMERTINIB [Suspect]
     Active Substance: OSIMERTINIB
     Indication: Lung carcinoma cell type unspecified recurrent
     Dosage: 80.0MG UNKNOWN
     Route: 048

REACTIONS (4)
  - Rash [Fatal]
  - Malignant neoplasm progression [Fatal]
  - Drug resistance [Fatal]
  - Stevens-Johnson syndrome [Fatal]
